FAERS Safety Report 25745893 (Version 1)
Quarter: 2025Q3

REPORT INFORMATION
  Report Type: Spontaneous
  Country: KR (occurrence: KR)
  Receive Date: 20250901
  Receipt Date: 20250901
  Transmission Date: 20251021
  Serious: Yes (Other)
  Sender: GILEAD
  Company Number: KR-GILEAD-2025-0725970

PATIENT

DRUGS (2)
  1. VEMLIDY [Suspect]
     Active Substance: TENOFOVIR ALAFENAMIDE FUMARATE
     Indication: Viral hepatitis carrier
     Route: 048
  2. CREZET [Concomitant]

REACTIONS (4)
  - Hepatic cancer [Recovering/Resolving]
  - Neoplasm malignant [Unknown]
  - Hepatectomy [Recovered/Resolved]
  - Hyperlipidaemia [Unknown]
